FAERS Safety Report 9578506 (Version 1)
Quarter: 2013Q4

REPORT INFORMATION
  Report Type: Spontaneous
  Country: US (occurrence: US)
  Receive Date: 20131001
  Receipt Date: 20131001
  Transmission Date: 20140711
  Serious: No
  Sender: FDA-Public Use
  Company Number: US-AMGEN-USASP2013013177

PATIENT
  Age: 66 Year
  Sex: Female
  Weight: 76.19 kg

DRUGS (4)
  1. ENBREL [Suspect]
     Indication: PRODUCT USED FOR UNKNOWN INDICATION
     Dosage: 50 MG, QWK
     Route: 058
  2. OMEGA 3                            /01334101/ [Concomitant]
     Dosage: 1000 MG, UNK
  3. VITAMIN D                          /00107901/ [Concomitant]
     Dosage: 1000 UNIT, UNK
  4. CALCIUM [Concomitant]
     Dosage: 1200 UNK, UNK

REACTIONS (1)
  - Erythema of eyelid [Unknown]
